FAERS Safety Report 7655265-X (Version None)
Quarter: 2011Q3

REPORT INFORMATION
  Report Type: 
  Country: None (occurrence: None)
  Receive Date: 20110804
  Receipt Date: 20110725
  Transmission Date: 20111222
  Serious: Yes (Hospitalization)
  Sender: FDA-Public Use
  Company Number: FR-BAYER-2011-065026

PATIENT
  Age: 18 Year
  Sex: Female

DRUGS (8)
  1. RIMIFON [Suspect]
     Indication: TUBERCULOSIS
     Dosage: 250 MG, QD
     Route: 048
     Dates: start: 20110201
  2. PYRAZINAMIDE [Suspect]
     Indication: TUBERCULOSIS
     Dosage: 1500 MG, QD
     Route: 048
     Dates: start: 20110201
  3. ALLOPURINOL [Concomitant]
     Dosage: UNK
     Route: 048
     Dates: end: 20110625
  4. MOXIFLOXACIN HCL [Suspect]
     Indication: TUBERCULOSIS
     Dosage: 400 MG, QD
     Route: 048
     Dates: start: 20110201
  5. AMIKACIN [Suspect]
     Indication: TUBERCULOSIS
     Dosage: 750 MG, QD
     Route: 042
     Dates: start: 20110201
  6. MYAMBUTOL [Suspect]
     Indication: TUBERCULOSIS
     Dosage: 1000 MG, QD
     Route: 048
     Dates: start: 20110201
  7. PASER [Suspect]
     Indication: TUBERCULOSIS
     Dosage: 4 G, BID
     Route: 048
     Dates: start: 20110302
  8. ONDANSERTRON HYDROCHLORIDE [Concomitant]
     Dosage: UNK
     Route: 048

REACTIONS (1)
  - SIDEROBLASTIC ANAEMIA [None]
